FAERS Safety Report 20616374 (Version 1)
Quarter: 2022Q1

REPORT INFORMATION
  Report Type: Spontaneous
  Country: US (occurrence: None)
  Receive Date: 20220321
  Receipt Date: 20220321
  Transmission Date: 20220424
  Serious: No
  Sender: FDA-Public Use
  Company Number: None

PATIENT
  Age: 66 Year
  Sex: Male

DRUGS (1)
  1. ANASTROZOLE [Suspect]
     Active Substance: ANASTROZOLE
     Indication: Erectile dysfunction
     Dates: start: 20210827, end: 20220226

REACTIONS (3)
  - Pancreatitis acute [None]
  - Blood triglycerides increased [None]
  - Oestradiol increased [None]

NARRATIVE: CASE EVENT DATE: 20220226
